FAERS Safety Report 7074204-6 (Version None)
Quarter: 2010Q4

REPORT INFORMATION
  Report Type: 
  Country: None (occurrence: None)
  Receive Date: 20101029
  Receipt Date: 20101020
  Transmission Date: 20110411
  Serious: Yes (Hospitalization)
  Sender: FDA-Public Use
  Company Number: US-JNJFOC-20100805279

PATIENT
  Sex: Male
  Weight: 43.6 kg

DRUGS (8)
  1. REMICADE [Suspect]
     Indication: INFLAMMATORY BOWEL DISEASE
     Route: 042
  2. CIMZIA [Concomitant]
  3. 6-MERCAPTOPURINE [Concomitant]
  4. ANTIBIOTICS [Concomitant]
     Indication: INFLAMMATORY BOWEL DISEASE
  5. PREDNISONE [Concomitant]
  6. MESALAMINE [Concomitant]
     Route: 054
  7. VITAMIN D [Concomitant]
  8. FERROUS SULFATE TAB [Concomitant]

REACTIONS (1)
  - CROHN'S DISEASE [None]
